FAERS Safety Report 17125529 (Version 4)
Quarter: 2021Q4

REPORT INFORMATION
  Report Type: Other
  Country: DE (occurrence: DE)
  Receive Date: 20191207
  Receipt Date: 20211209
  Transmission Date: 20220303
  Serious: Yes (Hospitalization, Disabling, Other)
  Sender: FDA-Public Use
  Company Number: DE-CELLTRION INC.-2019DE027068

PATIENT

DRUGS (10)
  1. RITUXIMAB [Suspect]
     Active Substance: RITUXIMAB
     Indication: Rheumatoid arthritis
     Dosage: 1000 MG
     Route: 065
  2. METHOTREXATE [Suspect]
     Active Substance: METHOTREXATE
     Indication: Rheumatoid arthritis
     Dosage: 10 MG, 1/WEEK
     Route: 065
  3. MAGNESIUM [Concomitant]
     Active Substance: MAGNESIUM
  4. CYANOCOBALAMIN [Concomitant]
     Active Substance: CYANOCOBALAMIN
  5. ROSUVASTATIN [Concomitant]
     Active Substance: ROSUVASTATIN
  6. FOLIC ACID [Concomitant]
     Active Substance: FOLIC ACID
  7. AMLODIPINE [Concomitant]
     Active Substance: AMLODIPINE BESYLATE
     Indication: Hypertension
  8. METOPROLOL [Concomitant]
     Active Substance: METOPROLOL
     Indication: Coronary artery disease
  9. EZETIMIBE [Concomitant]
     Active Substance: EZETIMIBE
  10. CHOLECALCIFEROL [Concomitant]
     Active Substance: CHOLECALCIFEROL

REACTIONS (6)
  - Transient ischaemic attack [Recovered/Resolved]
  - Aortic aneurysm [Not Recovered/Not Resolved]
  - Respiratory distress [Unknown]
  - Atrial fibrillation [Recovered/Resolved]
  - Cardiac disorder [Recovered/Resolved]
  - Productive cough [Unknown]

NARRATIVE: CASE EVENT DATE: 20190701
